FAERS Safety Report 25218827 (Version 1)
Quarter: 2025Q2

REPORT INFORMATION
  Report Type: Spontaneous
  Country: CG (occurrence: CG)
  Receive Date: 20250421
  Receipt Date: 20250421
  Transmission Date: 20250716
  Serious: Yes (Hospitalization, Other)
  Sender: STRIDES
  Company Number: CG-STRIDES ARCOLAB LIMITED-2025SP004816

PATIENT
  Age: 25 Year
  Sex: Female

DRUGS (20)
  1. ALBENDAZOLE [Suspect]
     Active Substance: ALBENDAZOLE
     Indication: Symptomatic treatment
     Route: 048
     Dates: start: 2020
  2. AMOXICILLIN [Suspect]
     Active Substance: AMOXICILLIN
     Indication: Symptomatic treatment
     Route: 048
     Dates: start: 2020, end: 2020
  3. OMEPRAZOLE [Suspect]
     Active Substance: OMEPRAZOLE
     Indication: Symptomatic treatment
     Route: 048
     Dates: start: 2020, end: 2020
  4. IBUPROFEN [Suspect]
     Active Substance: IBUPROFEN
     Indication: Product used for unknown indication
     Route: 065
     Dates: start: 2020
  5. AMODIAQUINE\ARTESUNATE [Suspect]
     Active Substance: AMODIAQUINE\ARTESUNATE
     Indication: Symptomatic treatment
     Route: 048
     Dates: start: 2020, end: 2020
  6. ACETAMINOPHEN [Suspect]
     Active Substance: ACETAMINOPHEN
     Indication: Symptomatic treatment
     Route: 065
     Dates: start: 2020
  7. ACETAMINOPHEN [Suspect]
     Active Substance: ACETAMINOPHEN
     Route: 048
     Dates: start: 2020, end: 2020
  8. ACETAMINOPHEN [Suspect]
     Active Substance: ACETAMINOPHEN
     Route: 042
     Dates: start: 2020
  9. PAPAVERINE [Suspect]
     Active Substance: PAPAVERINE
     Indication: Symptomatic treatment
     Route: 048
     Dates: start: 2020
  10. PAPAVERINE [Suspect]
     Active Substance: PAPAVERINE
     Route: 042
     Dates: start: 2020
  11. FOLIC ACID [Suspect]
     Active Substance: FOLIC ACID
     Indication: Symptomatic treatment
     Route: 048
     Dates: start: 2020
  12. DEXTROSE\POTASSIUM CHLORIDE\SODIUM CHLORIDE\SODIUM CITRATE [Suspect]
     Active Substance: DEXTROSE\POTASSIUM CHLORIDE\SODIUM CHLORIDE\SODIUM CITRATE
     Indication: Symptomatic treatment
     Route: 048
     Dates: start: 2020
  13. DEXTROSE [Suspect]
     Active Substance: DEXTROSE MONOHYDRATE
     Indication: Prophylaxis against dehydration
     Route: 065
     Dates: start: 2020
  14. LACTATED RINGERS SOLUTION [Suspect]
     Active Substance: CALCIUM CHLORIDE\POTASSIUM CHLORIDE\SODIUM CHLORIDE\SODIUM LACTATE
     Indication: Prophylaxis against dehydration
     Route: 065
     Dates: start: 2020
  15. CEFTRIAXONE [Suspect]
     Active Substance: CEFTRIAXONE
     Indication: Product used for unknown indication
     Route: 042
     Dates: start: 2020
  16. METRONIDAZOLE [Suspect]
     Active Substance: METRONIDAZOLE
     Indication: Product used for unknown indication
     Route: 042
     Dates: start: 2020
  17. TRAMADOL [Suspect]
     Active Substance: TRAMADOL
     Indication: Product used for unknown indication
     Route: 042
     Dates: start: 2020
  18. OMEPRAZOLE [Suspect]
     Active Substance: OMEPRAZOLE
     Indication: Product used for unknown indication
     Route: 042
     Dates: start: 2020
  19. ARTESUNATE [Suspect]
     Active Substance: ARTESUNATE
     Indication: Product used for unknown indication
     Route: 042
     Dates: start: 2020
  20. ERVEBO [Suspect]
     Active Substance: RECOMBINANT ZAIRE EBOLAVIRUS KIKWIT-95 ENVELOPE GLYCOPROTEIN MODIFIED VESICULAR STOMATITIS VIRUS
     Indication: Immunisation
     Route: 065
     Dates: start: 2020

REACTIONS (3)
  - Condition aggravated [Unknown]
  - Maternal exposure during pregnancy [Unknown]
  - Self-medication [Unknown]
